FAERS Safety Report 9679075 (Version 1)
Quarter: 2013Q4

REPORT INFORMATION
  Report Type: Spontaneous
  Country: AU (occurrence: AU)
  Receive Date: 20131108
  Receipt Date: 20131108
  Transmission Date: 20140711
  Serious: Yes (Life-Threatening, Hospitalization, Disabling, Other)
  Sender: FDA-Public Use
  Company Number: AU-B.I. PHARMACEUTICALS,INC./RIDGEFIELD-2013-BI-35946AU

PATIENT
  Age: 53 Year
  Sex: Female

DRUGS (1)
  1. MOBIC [Suspect]
     Indication: REPETITIVE STRAIN INJURY
     Dates: start: 2010

REACTIONS (12)
  - Haemorrhage [Unknown]
  - Ruptured cerebral aneurysm [Unknown]
  - Nervous system disorder [Unknown]
  - Headache [Unknown]
  - Loss of consciousness [Unknown]
  - VIIth nerve paralysis [Unknown]
  - Speech disorder [Unknown]
  - Amnesia [Unknown]
  - Asthenia [Unknown]
  - Blood pressure increased [Unknown]
  - Eye pain [Unknown]
  - Headache [Unknown]
